FAERS Safety Report 6343036-6 (Version None)
Quarter: 2009Q3

REPORT INFORMATION
  Report Type: 
  Country: None (occurrence: None)
  Receive Date: 20090821
  Receipt Date: 20090605
  Transmission Date: 20100115
  Serious: No
  Sender: FDA-Public Use
  Company Number: 8047575

PATIENT
  Age: 59 Year
  Sex: Male
  Weight: 88.4 kg

DRUGS (3)
  1. CIMZIA [Suspect]
     Indication: CROHN'S DISEASE
     Dosage: 400 MG SC
     Route: 058
     Dates: start: 20090508
  2. ENTOCORT EC [Concomitant]
  3. VITAMIN B-12 [Concomitant]

REACTIONS (1)
  - DIZZINESS [None]
